FAERS Safety Report 24215404 (Version 5)
Quarter: 2025Q1

REPORT INFORMATION
  Report Type: Report from Study
  Country: US (occurrence: US)
  Receive Date: 20240816
  Receipt Date: 20250306
  Transmission Date: 20250408
  Serious: No
  Sender: ACADIA PHARMACEUTICALS
  Company Number: US-ACADIA PHARMACEUTICALS INC.-ACA-2024-PIM-003903

PATIENT
  Sex: Male

DRUGS (2)
  1. NUPLAZID [Suspect]
     Active Substance: PIMAVANSERIN TARTRATE
     Indication: Parkinson^s disease
     Dosage: 34 MILLIGRAM, QD
     Route: 048
     Dates: start: 20240607
  2. BUPROPION [Concomitant]
     Active Substance: BUPROPION

REACTIONS (5)
  - Abdominal pain upper [Unknown]
  - Abdominal discomfort [Unknown]
  - Condition aggravated [Unknown]
  - Product dose omission issue [Unknown]
  - Insurance issue [Unknown]
